FAERS Safety Report 11825430 (Version 3)
Quarter: 2016Q2

REPORT INFORMATION
  Report Type: Report from Study
  Country: CA (occurrence: CA)
  Receive Date: 20151211
  Receipt Date: 20160614
  Transmission Date: 20160815
  Serious: Yes (Other)
  Sender: FDA-Public Use
  Company Number: CA-ROCHE-1594280

PATIENT
  Age: 22 Year
  Sex: Male
  Weight: 110 kg

DRUGS (13)
  1. CANDESARTAN [Suspect]
     Active Substance: CANDESARTAN
     Indication: PROTEIN URINE PRESENT
     Route: 065
     Dates: start: 201405, end: 201508
  2. PANTOLOC [Concomitant]
     Active Substance: PANTOPRAZOLE SODIUM
  3. ACETYLSALICYLIC ACID [Concomitant]
     Active Substance: ASPIRIN
  4. RITUXAN [Suspect]
     Active Substance: RITUXIMAB
     Indication: GRANULOMATOSIS WITH POLYANGIITIS
     Route: 042
     Dates: start: 20130502
  5. CANDESARTAN [Suspect]
     Active Substance: CANDESARTAN
     Route: 065
     Dates: start: 2015
  6. SULFATRIM [Concomitant]
     Active Substance: SULFAMETHOXAZOLE\TRIMETHOPRIM
  7. METHYLPREDNISOLONE. [Concomitant]
     Active Substance: METHYLPREDNISOLONE
     Indication: PREMEDICATION
     Route: 042
     Dates: start: 20141219
  8. RITUXAN [Suspect]
     Active Substance: RITUXIMAB
     Dosage: LAST INFUSION 11/DEC/2015
     Route: 042
     Dates: start: 20141219
  9. RITUXAN [Suspect]
     Active Substance: RITUXIMAB
     Dosage: UNKNOWN X 1 DOSE
     Route: 042
     Dates: start: 20131219
  10. WARFARIN [Concomitant]
     Active Substance: WARFARIN
  11. DIPHENHYDRAMINE HCL [Concomitant]
     Active Substance: DIPHENHYDRAMINE HYDROCHLORIDE
     Indication: PREMEDICATION
     Route: 048
     Dates: start: 20141219
  12. PREDNISONE. [Concomitant]
     Active Substance: PREDNISONE
  13. ACETAMINOPHEN. [Concomitant]
     Active Substance: ACETAMINOPHEN
     Indication: PREMEDICATION
     Route: 048
     Dates: start: 20141219

REACTIONS (7)
  - Urticaria [Recovering/Resolving]
  - Oropharyngeal pain [Recovered/Resolved]
  - Vasculitis [Not Recovered/Not Resolved]
  - Protein urine present [Unknown]
  - Infusion related reaction [Not Recovered/Not Resolved]
  - Heart rate decreased [Unknown]
  - Pharyngeal oedema [Not Recovered/Not Resolved]

NARRATIVE: CASE EVENT DATE: 2015
